FAERS Safety Report 16509276 (Version 1)
Quarter: 2019Q3

REPORT INFORMATION
  Report Type: Spontaneous
  Country: US (occurrence: US)
  Receive Date: 20190701
  Receipt Date: 20190701
  Transmission Date: 20191004
  Serious: Yes (Death)
  Sender: FDA-Public Use
  Company Number: None

PATIENT
  Sex: Male

DRUGS (3)
  1. CELEBREX [Concomitant]
     Active Substance: CELECOXIB
  2. LEXAPRO [Concomitant]
     Active Substance: ESCITALOPRAM OXALATE
  3. STELARA [Suspect]
     Active Substance: USTEKINUMAB
     Indication: PSORIASIS
     Dosage: ?          OTHER FREQUENCY:Q 12 WEEKS;?
     Route: 058
     Dates: start: 20190321

REACTIONS (1)
  - Death [None]
